FAERS Safety Report 8702595 (Version 6)
Quarter: 2013Q2

REPORT INFORMATION
  Report Type: Spontaneous
  Country: US (occurrence: US)
  Receive Date: 20120803
  Receipt Date: 20130401
  Transmission Date: 20140414
  Serious: Yes (Death, Hospitalization)
  Sender: FDA-Public Use
  Company Number: US-B.I. PHARMACEUTICALS,INC./RIDGEFIELD-2012-BP-17325BP

PATIENT
  Age: 73 Year
  Sex: Female
  Weight: 61.23 kg

DRUGS (16)
  1. PRADAXA [Suspect]
     Indication: ATRIAL FIBRILLATION
     Dosage: 300 MG
     Route: 048
     Dates: start: 20110414, end: 20111019
  2. METOPROLOL SUCCINATE [Concomitant]
     Dosage: 200 MG
     Dates: start: 20070830
  3. DIGOXIN [Concomitant]
     Dosage: 0.125 MG
  4. LISINOPRIL [Concomitant]
     Dosage: 20 MG
     Dates: start: 20070814
  5. ADVAIR [Concomitant]
     Route: 055
  6. GABAPENTIN [Concomitant]
     Dosage: 600 MG
     Dates: start: 20081031
  7. LASIX [Concomitant]
     Dosage: 80 MG
     Dates: start: 20090512
  8. PRAVASTATIN [Concomitant]
     Dosage: 40 MG
  9. DICLOFENAC [Concomitant]
     Dosage: 150 MG
  10. SPIRIVA [Concomitant]
     Dosage: 18 MCG
     Dates: start: 20090526, end: 201111
  11. POTASSIUM CHLORIDE [Concomitant]
     Dosage: 60 MEQ
  12. TRAMADOL [Concomitant]
     Indication: PAIN
     Dates: start: 20040426
  13. KLONOPIN [Concomitant]
  14. ZOLOFT [Concomitant]
     Dosage: 50 MG
     Dates: start: 20110810
  15. OMEPRAZOLE [Concomitant]
     Dates: start: 20060418
  16. RANITIDINE [Concomitant]
     Dates: start: 20041222, end: 201111

REACTIONS (3)
  - Gastrointestinal haemorrhage [Fatal]
  - Vaginal haemorrhage [Unknown]
  - Contusion [Unknown]
